FAERS Safety Report 8326459-5 (Version None)
Quarter: 2012Q2

REPORT INFORMATION
  Report Type: 
  Country: None (occurrence: None)
  Receive Date: 20120501
  Receipt Date: 20120418
  Transmission Date: 20120825
  Serious: Yes (Death)
  Sender: FDA-Public Use
  Company Number: FR-VERTEX PHARMACEUTICALS INC.-AE-2012-005934

PATIENT
  Sex: Male
  Weight: 102 kg

DRUGS (5)
  1. INCIVO (TELAPREVIR) [Suspect]
     Indication: HEPATITIS C
     Dates: start: 20111221
  2. PROPRANOLOL [Concomitant]
     Indication: PORTAL HYPERTENSION
     Route: 065
     Dates: start: 20051108
  3. NEXIUM [Concomitant]
     Indication: GASTROOESOPHAGEAL REFLUX DISEASE
     Dates: start: 20051108
  4. PEGASYS [Concomitant]
     Indication: HEPATITIS C
     Route: 065
     Dates: start: 20111221
  5. RIBAVIRIN [Concomitant]
     Indication: HEPATITIS C
     Route: 065
     Dates: start: 20111221

REACTIONS (5)
  - SHOCK HAEMORRHAGIC [None]
  - OESOPHAGEAL VARICES HAEMORRHAGE [None]
  - HYPOTENSION [None]
  - CARDIAC ARREST [None]
  - HAEMATEMESIS [None]
